FAERS Safety Report 8174015-4 (Version None)
Quarter: 2012Q1

REPORT INFORMATION
  Report Type: 
  Country: None (occurrence: None)
  Receive Date: 20120229
  Receipt Date: 20120221
  Transmission Date: 20120608
  Serious: Yes (Hospitalization)
  Sender: FDA-Public Use
  Company Number: DE-ROCHE-1037917

PATIENT
  Sex: Male
  Weight: 90 kg

DRUGS (12)
  1. ACTEMRA [Suspect]
     Indication: RHEUMATOID ARTHRITIS
     Route: 042
     Dates: start: 20110927
  2. METFORMIN HCL [Concomitant]
     Dosage: METFORMIN 100
     Dates: start: 20070101
  3. METOPROLOL SUCCINATE [Concomitant]
     Dates: start: 20070101
  4. LANTUS [Concomitant]
     Dosage: TDD 34/E
     Dates: start: 20070101
  5. APIDRA [Concomitant]
     Dosage: TDD 10/E
  6. AMLODIPINE [Concomitant]
     Dosage: AMLODIPINE 10
  7. NOVALGIN [Concomitant]
     Dosage: NOVALGIN 500
  8. FOLSAURE [Concomitant]
     Dates: start: 20050523
  9. RAMIPRIL [Concomitant]
     Dates: start: 20080101
  10. RAMIPRIL [Concomitant]
     Dosage: DELIX 10
  11. OMEPRAZOLE [Concomitant]
     Dosage: OMEPRAZOLE 20
  12. TILIDINE [Concomitant]
     Dosage: TILIDIN 50

REACTIONS (1)
  - BURSITIS [None]
